FAERS Safety Report 9235056 (Version 3)
Quarter: 2013Q3

REPORT INFORMATION
  Report Type: Report from Study
  Country: BE (occurrence: BE)
  Receive Date: 20130416
  Receipt Date: 20130716
  Transmission Date: 20140515
  Serious: Yes (Death, Hospitalization)
  Sender: FDA-Public Use
  Company Number: BE-PFIZER INC-2013101393

PATIENT
  Age: 59 Year
  Sex: Female
  Weight: 80 kg

DRUGS (17)
  1. BOSUTINIB [Suspect]
     Indication: CHRONIC MYELOID LEUKAEMIA
     Dosage: 400 MG, 1X/DAY
     Route: 048
     Dates: start: 20081022
  2. TRAMADOL [Suspect]
     Indication: BACK PAIN
     Dosage: UNK, AS NEEDED
     Route: 030
     Dates: start: 20111028
  3. NOVOMIX [Concomitant]
     Indication: DIABETES MELLITUS
     Dosage: UNK
     Dates: start: 20101013
  4. ACETYLSALICYLIC ACID [Concomitant]
     Indication: CARDIOVASCULAR EVENT PROPHYLAXIS
     Dosage: 80 MG, UNK
     Route: 048
     Dates: start: 20120712
  5. LEVOTHYROXINE [Concomitant]
     Indication: HYPOTHYROIDISM
     Dosage: 75 UG, UNK
     Route: 048
     Dates: start: 20090213
  6. AMLODIPINE [Concomitant]
     Indication: HYPERTENSION
     Dosage: 5 MG, UNK
     Route: 048
     Dates: start: 20090208
  7. MACROGOL [Concomitant]
     Indication: CONSTIPATION PROPHYLAXIS
     Dosage: 10 G, UNK
     Route: 048
     Dates: start: 20110529
  8. PARACETAMOL [Concomitant]
     Indication: BACK PAIN
     Dosage: 1 G, UNK
     Dates: start: 20110725
  9. ESCITALOPRAM [Concomitant]
     Indication: PROPHYLAXIS
     Dosage: 10 MG, UNK
     Dates: start: 20110727
  10. ESCITALOPRAM [Concomitant]
     Indication: AGITATION
  11. LORMETAZEPAM [Concomitant]
     Indication: SLEEP DISORDER
     Dosage: 2.5 MG, UNK
     Dates: start: 20110727
  12. CLOPIDOGREL [Concomitant]
     Indication: THROMBOSIS PROPHYLAXIS
     Dosage: 75 MG, UNK
     Dates: start: 20110803
  13. PANTOPRAZOLE [Concomitant]
     Indication: PROPHYLAXIS
     Dosage: 20 MG, UNK
     Dates: start: 20110803
  14. PREGABALIN [Concomitant]
     Indication: PARAESTHESIA
     Dosage: 75 MG, UNK
     Dates: start: 20110811
  15. BISOPROLOL [Concomitant]
     Indication: HYPERTENSION
     Dosage: 5 MG, UNK
     Dates: start: 201203
  16. CLOTIAZEPAM [Concomitant]
     Indication: PROPHYLAXIS
     Dosage: 5 MG, UNK
     Dates: start: 20101006
  17. CLOTIAZEPAM [Concomitant]
     Indication: AGITATION

REACTIONS (3)
  - Sudden death [Fatal]
  - Gastrointestinal infection [Recovered/Resolved]
  - Faecaloma [Recovered/Resolved]
